FAERS Safety Report 4294270-0 (Version None)
Quarter: 2004Q1

REPORT INFORMATION
  Report Type: 
  Country: None (occurrence: None)
  Receive Date: 20040211
  Receipt Date: 20030801
  Transmission Date: 20041129
  Serious: No
  Sender: FDA-Public Use
  Company Number: US-GLAXOSMITHKLINE-A0419936A

PATIENT
  Age: 26 Year
  Sex: Female

DRUGS (7)
  1. LAMICTAL [Suspect]
     Indication: BIPOLAR II DISORDER
     Dosage: 100MG TWICE PER DAY
     Route: 048
     Dates: start: 20030612
  2. PREDNISONE [Suspect]
  3. ORTHO TRI-CYCLEN [Concomitant]
  4. ZYRTEC [Concomitant]
  5. AXERT [Concomitant]
  6. ADVAIR DISKUS 100/50 [Concomitant]
  7. FLONASE [Concomitant]

REACTIONS (1)
  - AMNESIA [None]
